FAERS Safety Report 9508956 (Version 1)
Quarter: 2013Q3

REPORT INFORMATION
  Report Type: Spontaneous
  Country: US (occurrence: US)
  Receive Date: 20130909
  Receipt Date: 20130909
  Transmission Date: 20140515
  Serious: No
  Sender: FDA-Public Use
  Company Number: US-BRISTOL-MYERS SQUIBB COMPANY-19069657

PATIENT
  Age: 70 Year
  Sex: Female
  Weight: 92.06 kg

DRUGS (7)
  1. ABILIFY TABS 10 MG [Suspect]
  2. CYMBALTA [Concomitant]
     Dosage: 2 EVERY MORNING, ONE EVERY AFTERNOON
  3. GABAPENTIN [Concomitant]
  4. SIMVASTATIN [Concomitant]
  5. LISINOPRIL [Concomitant]
  6. HYDROCODONE [Concomitant]
     Indication: PAIN
  7. OMEPRAZOLE [Concomitant]

REACTIONS (1)
  - Wrong technique in drug usage process [Unknown]
